FAERS Safety Report 16310533 (Version 2)
Quarter: 2019Q2

REPORT INFORMATION
  Report Type: Spontaneous
  Country: US (occurrence: US)
  Receive Date: 20190514
  Receipt Date: 20190520
  Transmission Date: 20190711
  Serious: Yes (Death)
  Sender: FDA-Public Use
  Company Number: US-PFIZER INC-2019200577

PATIENT

DRUGS (2)
  1. FUROSEMIDE. [Suspect]
     Active Substance: FUROSEMIDE
     Indication: IMMUNOSUPPRESSANT DRUG THERAPY
     Dosage: UNK, DAILY 40-80 MG (FOR VARYING PERIODS PRIOR TO THE EPISODE)
  2. METHYLPREDNISOLONE SODIUM SUCCINATE. [Interacting]
     Active Substance: METHYLPREDNISOLONE SODIUM SUCCINATE
     Indication: IMMUNOSUPPRESSANT DRUG THERAPY
     Dosage: UNK (RAPID INFUSION OF THE MEDICATION; 500 TO 2000; PERIOD OF TIME RANGING FROM 20 SEC TO 20 MIN)
     Route: 042

REACTIONS (2)
  - Infusion related reaction [Fatal]
  - Drug interaction [Fatal]
